FAERS Safety Report 21553868 (Version 1)
Quarter: 2022Q4

REPORT INFORMATION
  Report Type: Spontaneous
  Country: ES (occurrence: ES)
  Receive Date: 20221104
  Receipt Date: 20221104
  Transmission Date: 20230113
  Serious: Yes (Other)
  Sender: FDA-Public Use
  Company Number: None

PATIENT
  Age: 61 Year
  Sex: Male

DRUGS (4)
  1. DAPTOMYCIN [Suspect]
     Active Substance: DAPTOMYCIN
     Indication: Bacteraemia
     Dosage: 500 MILLIGRAM
     Route: 042
     Dates: start: 20220905, end: 20220905
  2. SOMATOSTATIN [Concomitant]
     Active Substance: SOMATOSTATIN
     Indication: Fistula
     Dosage: 6 MILLIGRAM, QD
     Route: 042
     Dates: start: 20220831
  3. METAMIZOLE [Concomitant]
     Active Substance: METAMIZOLE
     Indication: Analgesic therapy
     Dosage: 2 GRAM, Q8H
     Route: 042
     Dates: start: 20220802
  4. DEXKETOPROFENUM [Concomitant]
     Indication: Analgesic therapy
     Dosage: 50 MILLIGRAM, Q8H
     Route: 042
     Dates: start: 20220902

REACTIONS (1)
  - Periorbital oedema [Recovered/Resolved]

NARRATIVE: CASE EVENT DATE: 20220905
